FAERS Safety Report 20505055 (Version 2)
Quarter: 2022Q1

REPORT INFORMATION
  Report Type: Spontaneous
  Country: US (occurrence: US)
  Receive Date: 20220223
  Receipt Date: 20220302
  Transmission Date: 20220423
  Serious: Yes (Other)
  Sender: FDA-Public Use
  Company Number: US-CELLTRION INC.-2022US001919

PATIENT

DRUGS (2)
  1. TRUXIMA [Suspect]
     Active Substance: RITUXIMAB-ABBS
     Indication: Glomerulonephritis membranous
     Dosage: 700 MG, ONE DAY A WEEK
     Dates: start: 20220207
  2. TRUXIMA [Suspect]
     Active Substance: RITUXIMAB-ABBS
     Dosage: 700 MG, ONE DAY A WEEK X 4 WEEKS
     Dates: start: 20220214

REACTIONS (2)
  - Glomerulonephritis membranous [Unknown]
  - Off label use [Unknown]
